FAERS Safety Report 4424683-5 (Version None)
Quarter: 2004Q3

REPORT INFORMATION
  Report Type: 
  Country: None (occurrence: None)
  Receive Date: 20040809
  Receipt Date: 20040430
  Transmission Date: 20050211
  Serious: Yes (Death)
  Sender: FDA-Public Use
  Company Number: M2004-1026

PATIENT
  Age: 27 Year
  Sex: Female

DRUGS (2)
  1. CIPROFLOXACIN [Suspect]
     Indication: TOOTH INFECTION
     Dosage: 500MG BD
  2. HYDROXYCHLOROQUINE SULFATE [Concomitant]

REACTIONS (11)
  - ACUTE RESPIRATORY DISTRESS SYNDROME [None]
  - CARDIAC ARREST [None]
  - DIARRHOEA [None]
  - HAEMOGLOBIN DECREASED [None]
  - MULTI-ORGAN FAILURE [None]
  - PULMONARY OEDEMA [None]
  - PYREXIA [None]
  - RESPIRATORY DISTRESS [None]
  - SHOCK [None]
  - TOXIC EPIDERMAL NECROLYSIS [None]
  - VENTRICULAR FAILURE [None]
